FAERS Safety Report 4356516-X (Version None)
Quarter: 2004Q2

REPORT INFORMATION
  Report Type: 
  Country: None (occurrence: None)
  Receive Date: 20040506
  Receipt Date: 20040426
  Transmission Date: 20050107
  Serious: Yes (Other)
  Sender: FDA-Public Use
  Company Number: US-JNJFOC-20040405491

PATIENT
  Age: 72 Year
  Sex: Female
  Weight: 83.4619 kg

DRUGS (14)
  1. INFLIXIMAB (INFLIXIMAB, RECOMBINANT) LYOPHILIZED POWDER [Suspect]
     Indication: RHEUMATOID ARTHRITIS
     Dosage: 5 MG/KG, 1 IN 8 WEEK, INTRAVENOUS
     Route: 042
     Dates: start: 20010115
  2. METHOTREXATE [Concomitant]
  3. VIOXX [Concomitant]
  4. DONNATAL [Concomitant]
  5. PREMARIN [Concomitant]
  6. RESTORIL [Concomitant]
  7. DIAZIDE (ISONIAZID) [Concomitant]
  8. FOLIC ACID [Concomitant]
  9. TYLENOL PM (TYLENOL PM) [Concomitant]
  10. ASPIRIN [Concomitant]
  11. MULTIVITAMIN [Concomitant]
  12. B COMPLEX ELX [Concomitant]
  13. CALCIUM (CALCIUIM) [Concomitant]
  14. VITAMIN (VITAMIN NOS) [Concomitant]

REACTIONS (1)
  - BASAL CELL CARCINOMA [None]
